FAERS Safety Report 12911343 (Version 1)
Quarter: 2016Q4

REPORT INFORMATION
  Report Type: Spontaneous
  Country: US (occurrence: US)
  Receive Date: 20161102
  Receipt Date: 20161102
  Transmission Date: 20170207
  Serious: Yes (Life-Threatening, Hospitalization)
  Sender: FDA-Public Use
  Company Number: None

PATIENT
  Age: 51 Year
  Sex: Female
  Weight: 37.35 kg

DRUGS (3)
  1. REMICADE [Suspect]
     Active Substance: INFLIXIMAB
  2. HUMIRA [Suspect]
     Active Substance: ADALIMUMAB
  3. CIMZIA [Suspect]
     Active Substance: CERTOLIZUMAB PEGOL

REACTIONS (4)
  - Antibody test positive [None]
  - Gastrointestinal disorder [None]
  - Weight decreased [None]
  - Surgery [None]
